FAERS Safety Report 8179828-0 (Version None)
Quarter: 2012Q1

REPORT INFORMATION
  Report Type: 
  Country: None (occurrence: None)
  Receive Date: 20120229
  Receipt Date: 20120229
  Transmission Date: 20120608
  Serious: Yes (Hospitalization)
  Sender: FDA-Public Use
  Company Number: None

PATIENT
  Sex: Female
  Weight: 78 kg

DRUGS (3)
  1. ERBITUX [Suspect]
     Dosage: 1248 MG
  2. TAXOL [Suspect]
     Dosage: 384 MG
  3. CARBOPLATIN [Suspect]
     Dosage: 601 MG

REACTIONS (9)
  - HYPERKALAEMIA [None]
  - RENAL TUBULAR NECROSIS [None]
  - LYMPHADENOPATHY [None]
  - PULMONARY EMBOLISM [None]
  - SEPSIS [None]
  - LUNG INFILTRATION [None]
  - PANCYTOPENIA [None]
  - METABOLIC ACIDOSIS [None]
  - DEEP VEIN THROMBOSIS [None]
